FAERS Safety Report 20520115 (Version 3)
Quarter: 2025Q2

REPORT INFORMATION
  Report Type: Spontaneous
  Country: MX (occurrence: MX)
  Receive Date: 20220225
  Receipt Date: 20250410
  Transmission Date: 20250717
  Serious: Yes (Other)
  Sender: BIOMARIN
  Company Number: MX-SA-SAC20220209000648

PATIENT

DRUGS (2)
  1. LARONIDASE [Suspect]
     Active Substance: LARONIDASE
     Indication: Mucopolysaccharidosis I
     Dosage: 500 U (4 VIALS), QOW
     Route: 041
     Dates: start: 2006
  2. LARONIDASE [Suspect]
     Active Substance: LARONIDASE
     Dosage: 3 DF (VIALS), QW
     Route: 041
     Dates: end: 202211

REACTIONS (4)
  - Seizure [Recovered/Resolved]
  - Hepatitis [Unknown]
  - Influenza [Recovered/Resolved]
  - Inappropriate schedule of product administration [Unknown]

NARRATIVE: CASE EVENT DATE: 20060101
